FAERS Safety Report 15366673 (Version 5)
Quarter: 2022Q2

REPORT INFORMATION
  Report Type: Report from Study
  Country: CA (occurrence: CA)
  Receive Date: 20180910
  Receipt Date: 20220628
  Transmission Date: 20220721
  Serious: Yes (Other)
  Sender: FDA-Public Use
  Company Number: CA-GLAXOSMITHKLINE-CA2018GSK082486

PATIENT

DRUGS (10)
  1. MEPOLIZUMAB [Suspect]
     Active Substance: MEPOLIZUMAB
     Indication: Asthma
     Dosage: 100 MG, Z (MONTHLY)
     Route: 042
     Dates: start: 20180110
  2. MEPOLIZUMAB [Suspect]
     Active Substance: MEPOLIZUMAB
     Dosage: 100 MG, Z (MONTHLY)
     Route: 042
  3. MEPOLIZUMAB [Suspect]
     Active Substance: MEPOLIZUMAB
     Dosage: 100 MG, Z (MONTHLY)
     Route: 042
     Dates: start: 20180110
  4. MEPOLIZUMAB [Suspect]
     Active Substance: MEPOLIZUMAB
     Dosage: 100 MG, Z (MONTHLY)
     Route: 042
  5. MEPOLIZUMAB [Suspect]
     Active Substance: MEPOLIZUMAB
     Dosage: 100 MG, Z (MONTHLY)
     Route: 042
  6. MEPOLIZUMAB [Suspect]
     Active Substance: MEPOLIZUMAB
     Dosage: 100 MG, Z(MONTHLY)
     Route: 042
  7. MEPOLIZUMAB [Suspect]
     Active Substance: MEPOLIZUMAB
     Dosage: 100 MG, Z(MONTHLY)
     Route: 042
  8. VENTOLIN [Suspect]
     Active Substance: ALBUTEROL SULFATE
     Indication: Asthma
     Dosage: UNK
  9. ADVAIR HFA [Suspect]
     Active Substance: FLUTICASONE PROPIONATE\SALMETEROL XINAFOATE
     Indication: Asthma
     Dosage: UNK
  10. PREDNISONE [Suspect]
     Active Substance: PREDNISONE
     Indication: Product used for unknown indication
     Dosage: 15 MG, QD

REACTIONS (20)
  - Cataract [Unknown]
  - General physical health deterioration [Unknown]
  - Loss of personal independence in daily activities [Recovered/Resolved]
  - Skin atrophy [Unknown]
  - Pruritus [Unknown]
  - Dry skin [Unknown]
  - Sleep disorder due to a general medical condition [Recovered/Resolved]
  - Dyspnoea [Recovering/Resolving]
  - Wheezing [Recovered/Resolved]
  - Pain in extremity [Not Recovered/Not Resolved]
  - Bursitis [Recovered/Resolved]
  - Tendon pain [Unknown]
  - Arthralgia [Unknown]
  - Burning sensation [Unknown]
  - Myalgia [Unknown]
  - Insomnia [Unknown]
  - Weight increased [Unknown]
  - Seborrhoea [Unknown]
  - Skin disorder [Unknown]
  - Osteoporosis [Unknown]

NARRATIVE: CASE EVENT DATE: 20180201
